FAERS Safety Report 8716461 (Version 2)
Quarter: 2013Q4

REPORT INFORMATION
  Report Type: Spontaneous
  Country: US (occurrence: US)
  Receive Date: 20120810
  Receipt Date: 20131101
  Transmission Date: 20140711
  Serious: Yes (Hospitalization)
  Sender: FDA-Public Use
  Company Number: US-009507513-1207USA010698

PATIENT
  Sex: Male

DRUGS (9)
  1. ZOCOR [Suspect]
     Route: 048
  2. PEGASYS [Suspect]
     Route: 058
  3. TELAPREVIR [Suspect]
     Route: 048
  4. COPEGUS [Suspect]
     Dosage: UNK
     Route: 048
  5. METOPROLOL [Concomitant]
     Dosage: UNK, QD
     Route: 048
  6. OMEPRAZOLE [Concomitant]
     Dosage: UNK, QD
     Route: 048
  7. ASPIRIN [Concomitant]
     Dosage: UNK, QD
     Route: 048
  8. LISINOPRIL [Concomitant]
     Dosage: UNK, QD
     Route: 048
  9. ZOCOR [Concomitant]
     Route: 048

REACTIONS (2)
  - Muscular weakness [Unknown]
  - Rhabdomyolysis [Unknown]
